FAERS Safety Report 7647033-X (Version None)
Quarter: 2011Q3

REPORT INFORMATION
  Report Type: 
  Country: None (occurrence: None)
  Receive Date: 20110801
  Receipt Date: 20110727
  Transmission Date: 20111222
  Serious: Yes (Other)
  Sender: FDA-Public Use
  Company Number: US-SANOFI-AVENTIS-2011SA044247

PATIENT
  Age: 68 Year
  Sex: Female
  Weight: 108 kg

DRUGS (6)
  1. ASPIRIN [Concomitant]
  2. FENTANYL [Concomitant]
     Indication: PAIN
     Dosage: 50MG/HR PATCH EVERY 72 YEARS
     Dates: start: 20090101
  3. MULTAQ [Suspect]
     Indication: ATRIAL FIBRILLATION
     Route: 048
     Dates: start: 20110113
  4. LISINOPRIL [Concomitant]
     Indication: BLOOD PRESSURE
     Dates: start: 20110101
  5. FUROSEMIDE [Concomitant]
     Dates: start: 20100101
  6. HYDROCODONE BITARTRATE [Concomitant]
     Indication: PAIN
     Dosage: 75/500 EVERY 4 HOURS AS NEEDED

REACTIONS (2)
  - BLADDER CANCER [None]
  - NAUSEA [None]
